FAERS Safety Report 9276058 (Version 4)
Quarter: 2013Q2

REPORT INFORMATION
  Report Type: Spontaneous
  Country: US (occurrence: US)
  Receive Date: 20130507
  Receipt Date: 20130612
  Transmission Date: 20140414
  Serious: No
  Sender: FDA-Public Use
  Company Number: US-JNJFOC-20130500161

PATIENT
  Age: 42 Year
  Sex: Male
  Weight: 90.72 kg

DRUGS (3)
  1. DURAGESIC [Suspect]
     Indication: PAIN
     Route: 062
  2. DURAGESIC [Suspect]
     Indication: PAIN
     Route: 062
     Dates: start: 2012
  3. BACLOFEN [Concomitant]
     Indication: SPINAL DISORDER
     Route: 065
     Dates: start: 2012

REACTIONS (5)
  - Abnormal loss of weight [Recovered/Resolved]
  - Decreased appetite [Not Recovered/Not Resolved]
  - Drug dose omission [Recovered/Resolved]
  - Product quality issue [Not Recovered/Not Resolved]
  - Cardiac disorder [Recovered/Resolved]
